FAERS Safety Report 6729916-8 (Version None)
Quarter: 2010Q2

REPORT INFORMATION
  Report Type: 
  Country: None (occurrence: None)
  Receive Date: 20100518
  Receipt Date: 20100510
  Transmission Date: 20101027
  Serious: Yes (Other)
  Sender: FDA-Public Use
  Company Number: PHHY2010IT30570

PATIENT
  Sex: Female

DRUGS (2)
  1. ZOMETA [Suspect]
     Indication: METASTASES TO BONE
     Dosage: 4 MG, QMO
     Route: 042
     Dates: start: 20050601, end: 20060214
  2. EXEMESTANE [Concomitant]
     Indication: BREAST CANCER
     Dosage: 25 MG DAILY
     Route: 048

REACTIONS (1)
  - OSTEONECROSIS OF JAW [None]
